FAERS Safety Report 10707094 (Version 1)
Quarter: 2015Q1

REPORT INFORMATION
  Report Type: Spontaneous
  Country: DE (occurrence: GB)
  Receive Date: 20150113
  Receipt Date: 20150113
  Transmission Date: 20150721
  Serious: Yes (Other)
  Sender: FDA-Public Use
  Company Number: GB-FRI-1000073552

PATIENT
  Age: 85 Year
  Sex: Female

DRUGS (13)
  1. CHLORPHENAMINE [Concomitant]
     Active Substance: CHLORPHENIRAMINE MALEATE
  2. PARACETAMOL [Concomitant]
     Active Substance: ACETAMINOPHEN
  3. DOCUSATE SODIUM. [Concomitant]
     Active Substance: DOCUSATE SODIUM
  4. ATORVASTATIN [Concomitant]
     Active Substance: ATORVASTATIN
  5. RAMIPRIL. [Concomitant]
     Active Substance: RAMIPRIL
  6. SPIRONOLACTONE. [Concomitant]
     Active Substance: SPIRONOLACTONE
  7. MEMANTINE [Suspect]
     Active Substance: MEMANTINE
     Indication: DEMENTIA
     Dosage: 20 MG
     Route: 048
     Dates: start: 20140702, end: 20140908
  8. AMLODIPINE [Concomitant]
     Active Substance: AMLODIPINE BESYLATE
  9. WARFARIN [Concomitant]
     Active Substance: WARFARIN
  10. BISOPROLOL [Concomitant]
     Active Substance: BISOPROLOL
  11. CYCLIZINE [Concomitant]
     Active Substance: CYCLIZINE
  12. PIVMECILLINAM [Concomitant]
     Active Substance: PENICILLIN
  13. BUMETANIDE. [Concomitant]
     Active Substance: BUMETANIDE

REACTIONS (2)
  - Hepatotoxicity [Recovering/Resolving]
  - Liver function test abnormal [Recovering/Resolving]

NARRATIVE: CASE EVENT DATE: 20140901
